FAERS Safety Report 6108967-0 (Version None)
Quarter: 2009Q1

REPORT INFORMATION
  Report Type: 
  Country: None (occurrence: None)
  Receive Date: 20090306
  Receipt Date: 20090218
  Transmission Date: 20090719
  Serious: Yes (Other)
  Sender: FDA-Public Use
  Company Number: 2009000637

PATIENT
  Age: 67 Year
  Sex: Male

DRUGS (1)
  1. MACUGEN [Suspect]
     Dosage: INTRA-VITREAL

REACTIONS (5)
  - BLINDNESS TRANSIENT [None]
  - INTRAOCULAR PRESSURE DECREASED [None]
  - INTRAOCULAR PRESSURE INCREASED [None]
  - PROCEDURAL COMPLICATION [None]
  - RETINAL ARTERY OCCLUSION [None]
